FAERS Safety Report 11195522 (Version 1)
Quarter: 2015Q2

REPORT INFORMATION
  Report Type: Spontaneous
  Country: US (occurrence: None)
  Receive Date: 20150615
  Receipt Date: 20150615
  Transmission Date: 20150821
  Serious: No
  Sender: FDA-Public Use
  Company Number: None

PATIENT
  Age: 56 Year
  Sex: Female
  Weight: 63.5 kg

DRUGS (8)
  1. TRAMADOL HCL [Suspect]
     Active Substance: TRAMADOL HYDROCHLORIDE
     Indication: PROCEDURAL PAIN
     Dosage: 1 TO 2 TABLETS EVERY 4 TO 6 HRS
     Route: 048
     Dates: start: 20150610, end: 20150612
  2. ASPIRIN 81 MG [Concomitant]
     Active Substance: ASPIRIN
  3. IBUPROFEN 400 MG [Concomitant]
     Active Substance: IBUPROFEN
  4. RED YEAST RICE 600 MG [Concomitant]
  5. ZETIA [Concomitant]
     Active Substance: EZETIMIBE
  6. SPIRONOLACTONE. [Concomitant]
     Active Substance: SPIRONOLACTONE
  7. CHOLECALCIFEROL (VITAMIN D) 2000 UNIT [Concomitant]
  8. CETIRIZINE [Concomitant]
     Active Substance: CETIRIZINE HYDROCHLORIDE

REACTIONS (1)
  - Dysuria [None]

NARRATIVE: CASE EVENT DATE: 20150611
